FAERS Safety Report 24591942 (Version 2)
Quarter: 2024Q4

REPORT INFORMATION
  Report Type: Report from Study
  Country: US (occurrence: US)
  Receive Date: 20241108
  Receipt Date: 20241117
  Transmission Date: 20250115
  Serious: Yes (Other)
  Sender: ALEXION PHARMACEUTICALS
  Company Number: US-AstraZeneca-CH-00733820A

PATIENT
  Age: 64 Year

DRUGS (4)
  1. TICAGRELOR [Suspect]
     Active Substance: TICAGRELOR
     Dosage: 90 UNK, BID
  2. TICAGRELOR [Suspect]
     Active Substance: TICAGRELOR
     Dosage: 90 UNK, BID
  3. TICAGRELOR [Suspect]
     Active Substance: TICAGRELOR
     Dosage: 90 UNK, BID
  4. TICAGRELOR [Suspect]
     Active Substance: TICAGRELOR
     Dosage: 90 UNK, BID

REACTIONS (1)
  - Cerebrovascular accident [Unknown]
